FAERS Safety Report 19053671 (Version 1)
Quarter: 2021Q1

REPORT INFORMATION
  Report Type: Spontaneous
  Country: US (occurrence: US)
  Receive Date: 20210325
  Receipt Date: 20210325
  Transmission Date: 20210420
  Serious: No
  Sender: FDA-Public Use
  Company Number: US-BIOGEN-2021BI00992766

PATIENT
  Sex: Female

DRUGS (1)
  1. VUMERITY [Suspect]
     Active Substance: DIROXIMEL FUMARATE
     Indication: MULTIPLE SCLEROSIS
     Route: 065

REACTIONS (6)
  - White blood cell count decreased [Unknown]
  - Hypersensitivity [Unknown]
  - Lymphocyte count decreased [Unknown]
  - Multiple sclerosis relapse [Unknown]
  - Headache [Unknown]
  - Dyspepsia [Unknown]
